FAERS Safety Report 19095049 (Version 1)
Quarter: 2021Q2

REPORT INFORMATION
  Report Type: Spontaneous
  Country: GB (occurrence: GB)
  Receive Date: 20210405
  Receipt Date: 20210405
  Transmission Date: 20210717
  Serious: Yes (Life-Threatening)
  Sender: FDA-Public Use
  Company Number: GB-B.BRAUN MEDICAL INC.-2108914

PATIENT
  Age: 12 Month
  Sex: Female

DRUGS (1)
  1. ACETAMINOPHEN. [Suspect]
     Active Substance: ACETAMINOPHEN

REACTIONS (20)
  - Malaise [None]
  - Liver function test abnormal [None]
  - Hepatotoxicity [None]
  - Incubator therapy [None]
  - Overdose [None]
  - Hepatic function abnormal [None]
  - Tremor [None]
  - Heart rate irregular [None]
  - Respiratory distress [None]
  - Jaundice [None]
  - Foetal arrhythmia [None]
  - Dependence [None]
  - Aphasia [None]
  - Premature baby [None]
  - Foetal monitoring abnormal [None]
  - Foetal exposure during pregnancy [None]
  - Incorrect product administration duration [None]
  - Developmental delay [None]
  - Gait inability [None]
  - Drug withdrawal syndrome neonatal [None]
